FAERS Safety Report 5241149-3 (Version None)
Quarter: 2007Q1

REPORT INFORMATION
  Report Type: 
  Country: None (occurrence: None)
  Receive Date: 20070220
  Receipt Date: 20070207
  Transmission Date: 20070707
  Serious: Yes (Death, Hospitalization)
  Sender: FDA-Public Use
  Company Number: US-JNJFOC-20070201901

PATIENT
  Age: 76 Year
  Sex: Male
  Weight: 75 kg

DRUGS (5)
  1. REMICADE [Suspect]
     Route: 042
  2. REMICADE [Suspect]
     Indication: RHEUMATOID ARTHRITIS
     Route: 042
  3. STEROIDS [Concomitant]
  4. MTX [Concomitant]
  5. ANTIBIOTICS (BROAD SPECTRUM) [Concomitant]

REACTIONS (7)
  - ASTHENIA [None]
  - GASTROENTERITIS VIRAL [None]
  - GASTROSTOMY TUBE INSERTION [None]
  - PNEUMONIA ASPIRATION [None]
  - RADICULOPATHY [None]
  - VIRAL UPPER RESPIRATORY TRACT INFECTION [None]
  - WEIGHT DECREASED [None]
